FAERS Safety Report 6850001-9 (Version None)
Quarter: 2010Q3

REPORT INFORMATION
  Report Type: 
  Country: None (occurrence: None)
  Receive Date: 20100716
  Receipt Date: 20071009
  Transmission Date: 20110219
  Serious: No
  Sender: FDA-Public Use
  Company Number: US-PFIZER INC-2007085687

PATIENT
  Sex: Female
  Weight: 63.6 kg

DRUGS (5)
  1. CHANTIX [Suspect]
     Indication: SMOKING CESSATION THERAPY
     Dates: start: 20070929
  2. DYAZIDE [Concomitant]
  3. CALCIUM [Concomitant]
  4. MULTI-VITAMINS [Concomitant]
  5. TETRACYCLINE [Concomitant]

REACTIONS (2)
  - NAUSEA [None]
  - VOMITING [None]
